FAERS Safety Report 5563353-7 (Version None)
Quarter: 2007Q4

REPORT INFORMATION
  Report Type: 
  Country: None (occurrence: None)
  Receive Date: 20071217
  Receipt Date: 20071210
  Transmission Date: 20080405
  Serious: Yes (Hospitalization)
  Sender: FDA-Public Use
  Company Number: PHNU2007DE04120

PATIENT
  Age: 85 Year
  Sex: Female

DRUGS (2)
  1. LOCOL [Suspect]
     Indication: HYPERCHOLESTEROLAEMIA
     Dosage: 80 MG, QD
     Route: 048
     Dates: start: 20060101, end: 20071201
  2. OPIOIDS [Concomitant]
     Indication: PAIN

REACTIONS (8)
  - CONDITION AGGRAVATED [None]
  - GASTROINTESTINAL INFECTION [None]
  - HAEMORRHAGE [None]
  - HEADACHE [None]
  - KNEE ARTHROPLASTY [None]
  - MUSCULAR WEAKNESS [None]
  - MYALGIA [None]
  - PARAESTHESIA [None]
